FAERS Safety Report 9358577 (Version 1)
Quarter: 2013Q2

REPORT INFORMATION
  Report Type: Spontaneous
  Country: AU (occurrence: AU)
  Receive Date: 20130620
  Receipt Date: 20130620
  Transmission Date: 20140414
  Serious: Yes (Hospitalization, Other)
  Sender: FDA-Public Use
  Company Number: PHHY2013AU061154

PATIENT
  Age: 18 Month
  Sex: Female
  Weight: 9 kg

DRUGS (1)
  1. LAMOTRIGINE [Suspect]

REACTIONS (8)
  - Abnormal behaviour [Recovered/Resolved]
  - Altered state of consciousness [Recovered/Resolved]
  - Agitation [Recovered/Resolved]
  - Choreoathetosis [Recovered/Resolved]
  - Hypertonia [Recovered/Resolved]
  - Dyskinesia [Recovered/Resolved]
  - Accidental exposure to product [Unknown]
  - Drug level increased [Unknown]
